FAERS Safety Report 9853958 (Version 2)
Quarter: 2014Q1

REPORT INFORMATION
  Report Type: Spontaneous
  Country: IT (occurrence: IT)
  Receive Date: 20140129
  Receipt Date: 20140129
  Transmission Date: 20141002
  Serious: Yes (Hospitalization)
  Sender: FDA-Public Use
  Company Number: IT-BAXTER-2014BAX002470

PATIENT
  Sex: Female

DRUGS (10)
  1. ACQUA PER PREPARAZIONI INIETTABILI [Suspect]
     Indication: PARENTERAL NUTRITION
     Route: 065
  2. GLUCOSIO BAXTER S.P.A. 50% [Suspect]
     Indication: PARENTERAL NUTRITION
     Route: 065
  3. SODIO CLORURO BAXTER S.P.A. 0,9% [Suspect]
     Indication: PARENTERAL NUTRITION
     Route: 065
  4. CLINOLEIC 20% [Suspect]
     Indication: PARENTERAL NUTRITION
     Route: 065
  5. SYNTHAMIN [Suspect]
     Indication: PARENTERAL NUTRITION
     Route: 065
  6. SODIO GLICERO FOSFATO [Suspect]
     Indication: PARENTERAL NUTRITION
     Dosage: 2 MEQ/ML
     Route: 065
  7. SODIO CLORURO [Suspect]
     Indication: PARENTERAL NUTRITION
     Route: 065
  8. POTASSIO ACETATO [Suspect]
     Indication: PARENTERAL NUTRITION
     Dosage: 3 MEQ/ML
     Route: 065
  9. MAGNESIO CLORURO [Suspect]
     Indication: PARENTERAL NUTRITION
     Route: 065
  10. CALCIO GLUCONATO [Suspect]
     Indication: PARENTERAL NUTRITION
     Route: 065

REACTIONS (2)
  - Pyrexia [Unknown]
  - Device related infection [Unknown]
